FAERS Safety Report 4643508-6 (Version None)
Quarter: 2005Q2

REPORT INFORMATION
  Report Type: 
  Country: None (occurrence: None)
  Receive Date: 20050425
  Receipt Date: 20050323
  Transmission Date: 20051028
  Serious: Yes (Hospitalization)
  Sender: FDA-Public Use
  Company Number: JP-SP-2005-00631

PATIENT
  Age: 80 Year
  Sex: Male

DRUGS (9)
  1. IMMUCYST [Suspect]
     Indication: BLADDER CANCER RECURRENT
     Route: 043
     Dates: start: 20050104, end: 20050209
  2. NAFTOPIDIL [Concomitant]
     Dosage: 25-50MG/DAY
     Route: 048
  3. CLENBUTEROL HYDROCHLORIDE [Concomitant]
     Dosage: 20?G/DAY
     Route: 048
  4. IRSOGLADINE MALEATE [Concomitant]
     Dosage: 4MG/DAY
     Route: 048
  5. IMIPRAMINE HCL [Concomitant]
     Dosage: 25MG/DAY
     Route: 048
  6. FLAVOXATE HYDROCHLORIDE [Concomitant]
     Dosage: 200MG/DAY
     Route: 048
  7. DIPYRIDAMOLE [Concomitant]
     Dosage: 75MG/DAY
     Route: 048
  8. TOCOPHEROL CONCENTRATE CAP [Concomitant]
     Dosage: 600MG/DAY
     Route: 048
  9. FAMOTIDINE [Concomitant]
     Dosage: 40MG/DAY
     Route: 048

REACTIONS (1)
  - EPIDIDYMITIS [None]
